FAERS Safety Report 6622587-0 (Version None)
Quarter: 2010Q1

REPORT INFORMATION
  Report Type: 
  Country: None (occurrence: None)
  Receive Date: 20100310
  Receipt Date: 20100113
  Transmission Date: 20100710
  Serious: No
  Sender: FDA-Public Use
  Company Number: US-BIOGENIDEC-2010BI001313

PATIENT
  Sex: Female

DRUGS (2)
  1. AVONEX [Suspect]
     Indication: MULTIPLE SCLEROSIS
     Route: 030
     Dates: start: 19980401, end: 20100101
  2. AVONEX [Suspect]
     Route: 030
     Dates: start: 20100101

REACTIONS (2)
  - INCORRECT DRUG DOSAGE FORM ADMINISTERED [None]
  - PAIN [None]
